FAERS Safety Report 13865939 (Version 1)
Quarter: 2017Q3

REPORT INFORMATION
  Report Type: Spontaneous
  Country: US (occurrence: US)
  Receive Date: 20170814
  Receipt Date: 20170814
  Transmission Date: 20171127
  Serious: Yes (Hospitalization)
  Sender: FDA-Public Use
  Company Number: US-ROCHE-668451

PATIENT
  Age: 17 Year
  Sex: Male
  Weight: 11.5 kg

DRUGS (9)
  1. CEFTRIAXONE. [Concomitant]
     Active Substance: CEFTRIAXONE
     Indication: PNEUMONIA
     Route: 042
     Dates: start: 20091023, end: 20091104
  2. IBUPROFEN. [Concomitant]
     Active Substance: IBUPROFEN
     Indication: ANALGESIC THERAPY
     Dosage: AS NECESSARY
     Route: 048
     Dates: start: 20091023, end: 20091030
  3. NEURAMIN [Concomitant]
     Indication: PARALYSIS
     Route: 065
     Dates: start: 20091023, end: 20091104
  4. ALBUTEROL. [Concomitant]
     Active Substance: ALBUTEROL
     Route: 065
  5. CASPOFUNGIN [Concomitant]
     Active Substance: CASPOFUNGIN
     Route: 065
  6. CLINDAMYCIN. [Concomitant]
     Active Substance: CLINDAMYCIN
     Indication: PNEUMONIA
     Route: 042
     Dates: start: 20091026, end: 20091104
  7. RANITIDINE. [Concomitant]
     Active Substance: RANITIDINE
     Indication: PROPHYLAXIS
     Route: 048
     Dates: start: 20091026, end: 20091126
  8. TAMIFLU [Suspect]
     Active Substance: OSELTAMIVIR PHOSPHATE
     Indication: H1N1 INFLUENZA
     Route: 048
     Dates: start: 20091023, end: 20091104
  9. VANCOMYCIN [Concomitant]
     Active Substance: VANCOMYCIN
     Indication: PNEUMONIA
     Route: 042
     Dates: start: 20091025, end: 20091028

REACTIONS (2)
  - Pneumonia [Unknown]
  - Glossitis [Unknown]

NARRATIVE: CASE EVENT DATE: 20091025
